FAERS Safety Report 18422802 (Version 4)
Quarter: 2021Q1

REPORT INFORMATION
  Report Type: Report from Study
  Country: US (occurrence: US)
  Receive Date: 20201024
  Receipt Date: 20210326
  Transmission Date: 20210419
  Serious: Yes (Other)
  Sender: FDA-Public Use
  Company Number: NVSC2020US278146

PATIENT
  Sex: Female

DRUGS (1)
  1. GILENYA [Suspect]
     Active Substance: FINGOLIMOD HYDROCHLORIDE
     Indication: MULTIPLE SCLEROSIS
     Dosage: 0.5 MG, QD
     Route: 048

REACTIONS (13)
  - Dyspnoea [Unknown]
  - Balance disorder [Unknown]
  - Corneal disorder [Unknown]
  - Diplopia [Unknown]
  - Fall [Unknown]
  - Nail disorder [Unknown]
  - Band sensation [Unknown]
  - Breast cancer [Unknown]
  - Vision blurred [Unknown]
  - Pain in extremity [Unknown]
  - Paraesthesia [Unknown]
  - Mass [Unknown]
  - Peripheral coldness [Unknown]
